FAERS Safety Report 25192961 (Version 1)
Quarter: 2025Q2

REPORT INFORMATION
  Report Type: Report from Study
  Country: BR (occurrence: BR)
  Receive Date: 20250414
  Receipt Date: 20250414
  Transmission Date: 20250717
  Serious: Yes (Death, Congenital Anomaly)
  Sender: ABBVIE
  Company Number: BR-ABBVIE-6224983

PATIENT

DRUGS (3)
  1. RITONAVIR [Suspect]
     Active Substance: RITONAVIR
     Indication: Maternal exposure timing unspecified
     Route: 064
  2. DARUNAVIR [Suspect]
     Active Substance: DARUNAVIR
     Indication: Maternal exposure timing unspecified
     Route: 064
  3. TIVICAY [Suspect]
     Active Substance: DOLUTEGRAVIR SODIUM
     Indication: Maternal exposure timing unspecified
     Route: 064

REACTIONS (4)
  - Foetal death [Fatal]
  - Lymphatic malformation [Unknown]
  - Hydrops foetalis [Unknown]
  - Foetal exposure during pregnancy [Unknown]
